FAERS Safety Report 21729175 (Version 13)
Quarter: 2023Q2

REPORT INFORMATION
  Report Type: Report from Study
  Country: US (occurrence: US)
  Receive Date: 20221214
  Receipt Date: 20230627
  Transmission Date: 20230722
  Serious: Yes (Hospitalization, Other)
  Sender: FDA-Public Use
  Company Number: US-TAKEDA-2022TUS096170

PATIENT
  Age: 60 Year
  Sex: Female
  Weight: 63 kg

DRUGS (26)
  1. HUMAN IMMUNOGLOBULIN G [Suspect]
     Active Substance: HUMAN IMMUNOGLOBULIN G
     Indication: Immunodeficiency common variable
     Dosage: 20 GRAM, Q2WEEKS
     Route: 058
     Dates: start: 20200110
  2. HUMAN IMMUNOGLOBULIN G [Suspect]
     Active Substance: HUMAN IMMUNOGLOBULIN G
     Indication: Primary immunodeficiency syndrome
  3. HUMAN IMMUNOGLOBULIN G [Suspect]
     Active Substance: HUMAN IMMUNOGLOBULIN G
     Indication: Hypogammaglobulinaemia
  4. WELLBUTRIN XL [Concomitant]
     Active Substance: BUPROPION HYDROCHLORIDE
     Indication: Product used for unknown indication
     Dosage: UNK
     Route: 065
  5. OMEPRAZOLE [Concomitant]
     Active Substance: OMEPRAZOLE
     Indication: Product used for unknown indication
     Dosage: UNK
     Route: 065
  6. FLONASE ALLERGY RELIEF [Concomitant]
     Active Substance: FLUTICASONE PROPIONATE
     Dosage: UNK
     Route: 065
  7. TRINTELLIX [Concomitant]
     Active Substance: VORTIOXETINE HYDROBROMIDE
     Indication: Product used for unknown indication
     Dosage: UNK
     Route: 065
  8. XIIDRA [Concomitant]
     Active Substance: LIFITEGRAST
     Indication: Product used for unknown indication
     Dosage: UNK
     Route: 065
  9. VITAMIN D3 [Concomitant]
     Active Substance: CHOLECALCIFEROL
     Dosage: UNK
     Route: 065
  10. CLINDAMYCIN HYDROCHLORIDE [Concomitant]
     Active Substance: CLINDAMYCIN HYDROCHLORIDE
     Dosage: UNK
     Route: 065
  11. VYVANSE [Concomitant]
     Active Substance: LISDEXAMFETAMINE DIMESYLATE
     Indication: Product used for unknown indication
     Dosage: UNK
     Route: 065
  12. Covid-19 vaccine [Concomitant]
     Dosage: UNK
     Route: 065
  13. ACETAMINOPHEN [Concomitant]
     Active Substance: ACETAMINOPHEN
     Indication: Product used for unknown indication
     Dosage: UNK
     Route: 065
  14. DIPHENHYDRAMINE [Concomitant]
     Active Substance: DIPHENHYDRAMINE
     Indication: Product used for unknown indication
     Dosage: UNK
     Route: 065
  15. EPINEPHRINE [Concomitant]
     Active Substance: EPINEPHRINE
     Indication: Product used for unknown indication
     Dosage: UNK
     Route: 065
  16. Lmx [Concomitant]
     Indication: Product used for unknown indication
     Dosage: UNK
     Route: 065
  17. WELLBUTRIN [Concomitant]
     Active Substance: BUPROPION HYDROCHLORIDE
     Indication: Product used for unknown indication
     Dosage: UNK
     Route: 065
  18. PROAIR HFA [Concomitant]
     Active Substance: ALBUTEROL SULFATE
     Indication: Product used for unknown indication
     Dosage: UNK
     Route: 065
  19. HYDROXYCHLOROQUINE SULFATE [Concomitant]
     Active Substance: HYDROXYCHLOROQUINE SULFATE
     Dosage: UNK
     Route: 065
  20. OXYCODONE [Concomitant]
     Active Substance: OXYCODONE
     Dosage: UNK
     Route: 065
  21. CELEBREX [Concomitant]
     Active Substance: CELECOXIB
     Dosage: UNK
     Route: 065
  22. GABAPENTIN [Concomitant]
     Active Substance: GABAPENTIN
     Dosage: UNK
     Route: 065
  23. CLONAZEPAM [Concomitant]
     Active Substance: CLONAZEPAM
     Dosage: UNK
     Route: 065
  24. FOLIC ACID [Concomitant]
     Active Substance: FOLIC ACID
     Dosage: UNK
     Route: 065
  25. METHOTREXATE [Concomitant]
     Active Substance: METHOTREXATE
     Dosage: UNK
     Route: 065
  26. DIPHENHYDRAMINE HYDROCHLORIDE [Concomitant]
     Active Substance: DIPHENHYDRAMINE HYDROCHLORIDE
     Dosage: UNK
     Route: 065

REACTIONS (55)
  - Post procedural haemorrhage [Unknown]
  - Mental disorder [Unknown]
  - Influenza [Unknown]
  - Myocardial infarction [Unknown]
  - Blood pressure increased [Unknown]
  - Suicidal ideation [Unknown]
  - Oesophageal candidiasis [Unknown]
  - Lower respiratory tract infection [Unknown]
  - Cataract [Unknown]
  - Type III immune complex mediated reaction [Unknown]
  - Retinal tear [Unknown]
  - Spinal cord neoplasm [Unknown]
  - Lymphoma [Unknown]
  - Osteomyelitis [Unknown]
  - Bronchiectasis [Unknown]
  - Seasonal allergy [Unknown]
  - Depression [Unknown]
  - Musculoskeletal discomfort [Unknown]
  - Sinusitis [Unknown]
  - Alopecia [Unknown]
  - Sinus disorder [Unknown]
  - Skin infection [Not Recovered/Not Resolved]
  - Connective tissue disorder [Unknown]
  - Fibromyalgia [Unknown]
  - Soft tissue disorder [Unknown]
  - Hernia [Unknown]
  - Pharyngitis [Unknown]
  - Renal disorder [Unknown]
  - Gastroenteritis viral [Not Recovered/Not Resolved]
  - Labyrinthitis [Unknown]
  - Post procedural infection [Unknown]
  - Respiratory tract congestion [Not Recovered/Not Resolved]
  - Cardiac disorder [Unknown]
  - Obstruction [Unknown]
  - Pleural effusion [Unknown]
  - Pulmonary mass [Unknown]
  - Infection [Unknown]
  - Urinary tract infection [Unknown]
  - Ehlers-Danlos syndrome [Unknown]
  - Slipping rib syndrome [Unknown]
  - COVID-19 [Recovering/Resolving]
  - Nasal septum deviation [Unknown]
  - Swelling face [Unknown]
  - Pain [Unknown]
  - Infusion site swelling [Unknown]
  - Headache [Unknown]
  - Fatigue [Unknown]
  - Nausea [Unknown]
  - Asthenia [Unknown]
  - Dizziness [Unknown]
  - Back pain [Unknown]
  - Musculoskeletal chest pain [Unknown]
  - Lymphadenopathy [Unknown]
  - Bronchitis [Unknown]
  - Product dose omission issue [Unknown]

NARRATIVE: CASE EVENT DATE: 20201019
